FAERS Safety Report 16490255 (Version 1)
Quarter: 2019Q2

REPORT INFORMATION
  Report Type: Spontaneous
  Country: CA (occurrence: CA)
  Receive Date: 20190628
  Receipt Date: 20190628
  Transmission Date: 20190711
  Serious: Yes (Death, Hospitalization)
  Sender: FDA-Public Use
  Company Number: CA-B.I. PHARMACEUTICALS,INC./RIDGEFIELD-2019-BI-028153

PATIENT
  Age: 28 Year
  Sex: Male

DRUGS (7)
  1. DIMENHYDRINATE. [Suspect]
     Active Substance: DIMENHYDRINATE
     Indication: DRUG WITHDRAWAL SYNDROME
     Route: 065
  2. METHAMPHETAMINE [Suspect]
     Active Substance: METHAMPHETAMINE
     Indication: PRODUCT USED FOR UNKNOWN INDICATION
     Route: 042
  3. TRAZODONE [Suspect]
     Active Substance: TRAZODONE HYDROCHLORIDE
     Indication: DRUG WITHDRAWAL SYNDROME
     Route: 065
  4. CATAPRES [Suspect]
     Active Substance: CLONIDINE HYDROCHLORIDE
     Indication: DRUG WITHDRAWAL SYNDROME
     Route: 065
  5. QUETIAPINE. [Suspect]
     Active Substance: QUETIAPINE
     Indication: DRUG WITHDRAWAL SYNDROME
     Route: 065
  6. HEROIN [Suspect]
     Active Substance: DIAMORPHINE
     Indication: PRODUCT USED FOR UNKNOWN INDICATION
     Route: 042
  7. BUPRENORPHINE/NALOXONE [Suspect]
     Active Substance: BUPRENORPHINE\NALOXONE
     Indication: DRUG WITHDRAWAL SYNDROME
     Route: 065

REACTIONS (1)
  - Overdose [Fatal]
